FAERS Safety Report 25196716 (Version 2)
Quarter: 2025Q2

REPORT INFORMATION
  Report Type: Spontaneous
  Country: US (occurrence: US)
  Receive Date: 20250415
  Receipt Date: 20250421
  Transmission Date: 20250716
  Serious: No
  Sender: ALEXION PHARMACEUTICALS
  Company Number: US-AstraZeneca-CH-00847155A

PATIENT

DRUGS (3)
  1. BRILINTA [Suspect]
     Active Substance: TICAGRELOR
     Indication: Stent placement
  2. CRESTOR [Suspect]
     Active Substance: ROSUVASTATIN CALCIUM
     Indication: Blood cholesterol
  3. ELIQUIS [Concomitant]
     Active Substance: APIXABAN
     Route: 065

REACTIONS (15)
  - Hypersensitivity [Unknown]
  - Muscle spasms [Unknown]
  - Arthralgia [Unknown]
  - Gait disturbance [Unknown]
  - Skin discolouration [Unknown]
  - Abdominal distension [Unknown]
  - Constipation [Unknown]
  - Gastrointestinal disorder [Unknown]
  - Dysuria [Unknown]
  - Chromaturia [Unknown]
  - Faeces discoloured [Unknown]
  - Bladder irritation [Unknown]
  - Pollakiuria [Unknown]
  - Yellow skin [Unknown]
  - Blood cholesterol [Unknown]
